FAERS Safety Report 6392484-7 (Version None)
Quarter: 2009Q4

REPORT INFORMATION
  Report Type: 
  Country: None (occurrence: None)
  Receive Date: 20091007
  Receipt Date: 20090928
  Transmission Date: 20100525
  Serious: Yes (Other)
  Sender: FDA-Public Use
  Company Number: CA-SANOFI-SYNTHELABO-A01200910111

PATIENT
  Age: 26 Week
  Sex: Female

DRUGS (5)
  1. HYDROCORTISONE [Concomitant]
     Indication: DRUG USE FOR UNKNOWN INDICATION
     Dosage: 4 UNIT
     Route: 065
  2. DOPAMINE HCL [Concomitant]
     Indication: DRUG USE FOR UNKNOWN INDICATION
     Dosage: 20 UG/KG/MIN
     Route: 065
  3. NITRIC OXIDE [Concomitant]
     Dosage: 10 PPM
     Route: 055
  4. MILRINONE [Suspect]
     Indication: DRUG USE FOR UNKNOWN INDICATION
     Dosage: LOADING DOSE : 50 UG/KG/MIN
     Route: 065
  5. MILRINONE [Suspect]
     Dosage: CONTINUOUS INFUSION : 0.33 UG/KG/MIN
     Route: 065

REACTIONS (1)
  - INTRAVENTRICULAR HAEMORRHAGE NEONATAL [None]
